FAERS Safety Report 13398908 (Version 3)
Quarter: 2017Q2

REPORT INFORMATION
  Report Type: Report from Study
  Country: None (occurrence: PE)
  Receive Date: 20170404
  Receipt Date: 20170506
  Transmission Date: 20170830
  Serious: Yes (Other)
  Sender: FDA-Public Use
  Company Number: PE-ABBVIE-17K-127-1927919-00

PATIENT
  Age: 54 Year
  Sex: Female
  Weight: 70 kg

DRUGS (5)
  1. METHOTREXATE. [Concomitant]
     Active Substance: METHOTREXATE
     Indication: PRODUCT USED FOR UNKNOWN INDICATION
  2. HUMIRA [Suspect]
     Active Substance: ADALIMUMAB
     Indication: RHEUMATOID ARTHRITIS
     Route: 058
     Dates: start: 20161108, end: 20170119
  3. KETOPROFEN. [Concomitant]
     Active Substance: KETOPROFEN
     Indication: PRODUCT USED FOR UNKNOWN INDICATION
  4. ATENOLOL. [Concomitant]
     Active Substance: ATENOLOL
     Indication: PRODUCT USED FOR UNKNOWN INDICATION
  5. LEFLUNOMIDE. [Concomitant]
     Active Substance: LEFLUNOMIDE
     Indication: PRODUCT USED FOR UNKNOWN INDICATION

REACTIONS (5)
  - Abdominal pain [Recovering/Resolving]
  - Drug-induced liver injury [Recovering/Resolving]
  - Renal cyst [Recovering/Resolving]
  - Hepatic cyst [Recovering/Resolving]
  - Rheumatoid arthritis [Unknown]

NARRATIVE: CASE EVENT DATE: 20170123
